FAERS Safety Report 8492892-4 (Version None)
Quarter: 2012Q3

REPORT INFORMATION
  Report Type: 
  Country: None (occurrence: None)
  Receive Date: 20120706
  Receipt Date: 20120705
  Transmission Date: 20120928
  Serious: Yes (Hospitalization)
  Sender: FDA-Public Use
  Company Number: US-GLAXOSMITHKLINE-A0816634A

PATIENT
  Age: 62 Year
  Sex: Male
  Weight: 118.2 kg

DRUGS (1)
  1. AVANDIA [Suspect]
     Indication: DIABETES MELLITUS
     Route: 065
     Dates: start: 20030601, end: 20090101

REACTIONS (1)
  - CEREBROVASCULAR ACCIDENT [None]
